FAERS Safety Report 6171487-1 (Version None)
Quarter: 2009Q2

REPORT INFORMATION
  Report Type: 
  Country: None (occurrence: None)
  Receive Date: 20090429
  Receipt Date: 20090417
  Transmission Date: 20091009
  Serious: Yes (Hospitalization)
  Sender: FDA-Public Use
  Company Number: FR-PFIZER INC-2009199619

PATIENT

DRUGS (11)
  1. SUTENT [Suspect]
     Indication: THYROID CANCER
     Dosage: 50 MG, 1X/DAY
     Dates: start: 20090311
  2. NEXIUM [Suspect]
     Indication: PROPHYLAXIS
     Dosage: 20 UNK, 1X/DAY
     Dates: start: 20081201
  3. TRIMEBUTINE MALEATE [Concomitant]
     Dosage: 2 DF, 2X/DAY
     Dates: start: 20090311
  4. ALPRAZOLAM [Concomitant]
     Indication: ANXIETY
     Dosage: 1.5 G, 3X/DAY
     Dates: start: 20080101
  5. SOLUPRED [Concomitant]
     Indication: DYSPNOEA
     Dosage: 40 UNK, 1X/DAY
     Dates: start: 20081201
  6. LEVOTHYROX [Concomitant]
     Indication: HYPOTHYROIDISM
     Dosage: 175 UG, 1X/DAY
     Dates: start: 19960101
  7. ATENOLOL [Concomitant]
     Indication: TACHYCARDIA
     Dosage: 75 MG, 2X/DAY
     Dates: start: 19970101
  8. TRAMADOL HCL [Concomitant]
     Dosage: 150 MG, 3X/DAY
     Dates: start: 20090301
  9. DOLIPRANE [Concomitant]
     Dosage: 2-3 G, 3X/DAY
     Dates: start: 20080901
  10. SPASFON-LYOC [Concomitant]
     Dosage: 61 UNK, 3X/DAY
     Dates: start: 20090311
  11. MOTILIUM [Concomitant]
     Dosage: 3 DF, 3X/DAY
     Dates: start: 20090311

REACTIONS (4)
  - ANOREXIA [None]
  - ASTHENIA [None]
  - HYPONATRAEMIA [None]
  - MALNUTRITION [None]
